FAERS Safety Report 7970653-X (Version None)
Quarter: 2011Q4

REPORT INFORMATION
  Report Type: 
  Country: None (occurrence: None)
  Receive Date: 20111212
  Receipt Date: 20111205
  Transmission Date: 20120403
  Serious: Yes (Death)
  Sender: FDA-Public Use
  Company Number: US-BAYER-2011-116880

PATIENT
  Age: 26 Year
  Sex: Male

DRUGS (2)
  1. ALEVE (CAPLET) [Suspect]
  2. XANAX [Concomitant]

REACTIONS (1)
  - TOXICITY TO VARIOUS AGENTS [None]
